FAERS Safety Report 8372094-2 (Version None)
Quarter: 2012Q2

REPORT INFORMATION
  Report Type: 
  Country: None (occurrence: None)
  Receive Date: 20120520
  Receipt Date: 20120503
  Transmission Date: 20120825
  Serious: Yes (Hospitalization)
  Sender: FDA-Public Use
  Company Number: DE-TEVA-338035GER

PATIENT
  Sex: Female
  Weight: 64 kg

DRUGS (11)
  1. CARBOPLATIN [Suspect]
     Indication: BREAST CANCER
     Route: 042
     Dates: start: 20120301, end: 20120503
  2. DOXORUBICIN HCL [Suspect]
     Indication: BREAST CANCER
     Route: 042
     Dates: start: 20120301
  3. PACLITAXEL [Suspect]
     Indication: BREAST CANCER
     Route: 042
     Dates: start: 20120301
  4. PALONOSETRON [Concomitant]
     Dates: start: 20120315
  5. DEXAMETHASONE SODIUM PHOSPHATE [Concomitant]
     Dates: start: 20120301
  6. LAPATINIB [Suspect]
     Indication: BREAST CANCER
     Route: 048
     Dates: start: 20120301, end: 20120503
  7. CLEMASTIN [Concomitant]
     Dates: start: 20120301
  8. LENOGRASTIM [Concomitant]
  9. TRASTUZUMAB [Suspect]
     Indication: BREAST CANCER
     Route: 042
     Dates: start: 20120301
  10. RANITIDINE HCL [Concomitant]
     Dates: start: 20120301
  11. ERYTHROPOETIN [Concomitant]

REACTIONS (4)
  - GENERAL PHYSICAL HEALTH DETERIORATION [None]
  - DIARRHOEA [None]
  - WEIGHT DECREASED [None]
  - VOMITING [None]
